FAERS Safety Report 18916521 (Version 2)
Quarter: 2021Q1

REPORT INFORMATION
  Report Type: Report from Study
  Country: US (occurrence: US)
  Receive Date: 20210219
  Receipt Date: 20210324
  Transmission Date: 20210420
  Serious: Yes (Other)
  Sender: FDA-Public Use
  Company Number: US-JAZZ-2021-US-002715

PATIENT
  Sex: Female

DRUGS (3)
  1. XYREM [Suspect]
     Active Substance: SODIUM OXYBATE
     Dosage: 4 GRAM, BID
     Route: 048
     Dates: start: 201502
  2. XYREM [Suspect]
     Active Substance: SODIUM OXYBATE
     Dosage: DOSE ADJUSTMENT
     Route: 048
     Dates: start: 201401, end: 201502
  3. XYREM [Suspect]
     Active Substance: SODIUM OXYBATE
     Indication: NARCOLEPSY
     Dosage: 2.25 GRAM, BID
     Route: 048
     Dates: start: 201310, end: 201401

REACTIONS (10)
  - Tongue discomfort [Not Recovered/Not Resolved]
  - Hypertension [Unknown]
  - Lichen planus [Not Recovered/Not Resolved]
  - Obesity [Unknown]
  - Diabetes mellitus [Not Recovered/Not Resolved]
  - Hyperkeratosis [Not Recovered/Not Resolved]
  - Post-traumatic stress disorder [Unknown]
  - Herpes virus infection [Not Recovered/Not Resolved]
  - Diarrhoea [Unknown]
  - Swelling [Unknown]
